FAERS Safety Report 6137903-6 (Version None)
Quarter: 2009Q1

REPORT INFORMATION
  Report Type: 
  Country: None (occurrence: None)
  Receive Date: 20090327
  Receipt Date: 20090327
  Transmission Date: 20090719
  Serious: No
  Sender: FDA-Public Use
  Company Number: None

PATIENT
  Age: 25 Year
  Sex: Female
  Weight: 58.9676 kg

DRUGS (1)
  1. GEODON [Suspect]
     Indication: SCHIZOPHRENIA
     Dosage: 110 MG DAILY ORAL
     Route: 048
     Dates: start: 20081201, end: 20090115

REACTIONS (7)
  - DYSTONIA [None]
  - HYPERACUSIS [None]
  - MUSCLE SPASMS [None]
  - MUSCLE TIGHTNESS [None]
  - RHINORRHOEA [None]
  - TENSION [None]
  - TREMOR [None]
